FAERS Safety Report 13659498 (Version 1)
Quarter: 2017Q2

REPORT INFORMATION
  Report Type: Spontaneous
  Country: US (occurrence: US)
  Receive Date: 20170616
  Receipt Date: 20170616
  Transmission Date: 20170830
  Serious: Yes (Hospitalization)
  Sender: FDA-Public Use
  Company Number: None

PATIENT
  Age: 66 Year
  Sex: Male
  Weight: 86.2 kg

DRUGS (1)
  1. OLANZAPINE. [Suspect]
     Active Substance: OLANZAPINE
     Indication: SCHIZOPHRENIA
     Dosage: DATES OF USE - CHRONIC?FREQUENCY - QHS
     Route: 048

REACTIONS (6)
  - Shock [None]
  - Transaminases increased [None]
  - Hypothermia [None]
  - Bradycardia [None]
  - Encephalopathy [None]
  - Pancytopenia [None]

NARRATIVE: CASE EVENT DATE: 20170324
